FAERS Safety Report 9845459 (Version 9)
Quarter: 2014Q3

REPORT INFORMATION
  Report Type: Spontaneous
  Country: US (occurrence: US)
  Receive Date: 20140127
  Receipt Date: 20140714
  Transmission Date: 20150326
  Serious: Yes (Hospitalization, Other)
  Sender: FDA-Public Use
  Company Number: PHEH2007US016493

PATIENT
  Age: 50 Year
  Sex: Female
  Weight: 86.62 kg

DRUGS (38)
  1. ATENOLOL. [Concomitant]
     Active Substance: ATENOLOL
  2. AMITRIPTYLINE [Concomitant]
     Active Substance: AMITRIPTYLINE
  3. VICODIN [Concomitant]
     Active Substance: ACETAMINOPHEN\HYDROCODONE BITARTRATE
  4. PERCOCET [Concomitant]
     Active Substance: ACETAMINOPHEN\OXYCODONE HYDROCHLORIDE
  5. ENALAPRIL [Concomitant]
     Active Substance: ENALAPRIL
  6. DEXAMETHASONE. [Concomitant]
     Active Substance: DEXAMETHASONE
     Dosage: 4 MG, TID
     Route: 048
     Dates: start: 20090109
  7. LASIX [Concomitant]
     Active Substance: FUROSEMIDE
  8. COUMADINE [Concomitant]
     Active Substance: WARFARIN SODIUM
  9. ZOMETA [Suspect]
     Active Substance: ZOLEDRONIC ACID
     Indication: BREAST CANCER STAGE IV
  10. ANTIBIOTICS [Suspect]
     Active Substance: UNSPECIFIED INGREDIENT
  11. ARIMIDEX [Concomitant]
     Active Substance: ANASTROZOLE
  12. ACETAMINOPHEN PM [Concomitant]
     Active Substance: ACETAMINOPHEN\DIPHENHYDRAMINE HYDROCHLORIDE
  13. CALCIUM WITH VITAMIN D [Concomitant]
     Active Substance: CALCIUM\VITAMIN D
  14. OXYCONTIN [Concomitant]
     Active Substance: OXYCODONE HYDROCHLORIDE
  15. AMOXICILLIN. [Concomitant]
     Active Substance: AMOXICILLIN
  16. CORTISONE [Concomitant]
     Active Substance: CORTISONE\HYDROCORTISONE
  17. ASPIRIN ^BAYER^ [Concomitant]
     Active Substance: ASPIRIN
  18. ZOCOR [Concomitant]
     Active Substance: SIMVASTATIN
  19. ZOMETA [Suspect]
     Active Substance: ZOLEDRONIC ACID
     Indication: METASTASES TO BONE
     Dosage: 4 MG, QMO
     Route: 042
  20. AREDIA [Suspect]
     Active Substance: PAMIDRONATE DISODIUM
     Indication: METASTASES TO BONE
     Dosage: 90 MG, QMO
     Route: 042
     Dates: start: 20000210
  21. LIPITOR [Concomitant]
     Active Substance: ATORVASTATIN CALCIUM
  22. DICLOFENAC SODIUM. [Concomitant]
     Active Substance: DICLOFENAC SODIUM
     Dosage: 50 MG, BID
     Route: 048
  23. GABAPENTIN. [Concomitant]
     Active Substance: GABAPENTIN
     Dosage: 100 MG, TID
  24. CALTRATE WITH VITAMIN D [Concomitant]
     Active Substance: CALCIUM CARBONATE\VITAMIN D
     Dosage: 1 DF, BID 600-200 MG
  25. TAXOTERE [Concomitant]
     Active Substance: DOCETAXEL
  26. ZYRTEC [Concomitant]
     Active Substance: CETIRIZINE HYDROCHLORIDE
  27. CENTRUM SILVER [Concomitant]
     Active Substance: VITAMINS
     Dosage: 1 DF, QD
  28. POTASSIUM [Concomitant]
     Active Substance: POTASSIUM
  29. AREDIA [Suspect]
     Active Substance: PAMIDRONATE DISODIUM
     Indication: BREAST CANCER STAGE IV
  30. SYNTHROID [Concomitant]
     Active Substance: LEVOTHYROXINE SODIUM
  31. NEXIUM [Concomitant]
     Active Substance: ESOMEPRAZOLE MAGNESIUM
  32. EFFEXOR XR [Concomitant]
     Active Substance: VENLAFAXINE HYDROCHLORIDE
  33. ZOFRAN [Concomitant]
     Active Substance: ONDANSETRON HYDROCHLORIDE
     Route: 042
  34. TORADOL [Concomitant]
     Active Substance: KETOROLAC TROMETHAMINE
  35. EFFEXOR [Concomitant]
     Active Substance: VENLAFAXINE HYDROCHLORIDE
     Dosage: 150 MG, QD
  36. CELEBREX [Concomitant]
     Active Substance: CELECOXIB
  37. TYLENOL PM [Concomitant]
     Active Substance: ACETAMINOPHEN\DIPHENHYDRAMINE
  38. DEXAMETHASONE. [Concomitant]
     Active Substance: DEXAMETHASONE
     Dosage: 4 MG, BID
     Dates: start: 20090114

REACTIONS (163)
  - Osteomalacia [Unknown]
  - Anxiety [Unknown]
  - General physical health deterioration [Unknown]
  - Bone fragmentation [Unknown]
  - Paraesthesia oral [Unknown]
  - Pyrexia [Unknown]
  - Iron deficiency anaemia [Recovered/Resolved]
  - Oesophageal disorder [Unknown]
  - Atelectasis [Unknown]
  - Back pain [Unknown]
  - Dizziness [Unknown]
  - Headache [Unknown]
  - Lumbar radiculopathy [Unknown]
  - Urinary retention [Unknown]
  - Pain in jaw [Unknown]
  - Gingival blister [Recovered/Resolved]
  - Cervical dysplasia [Unknown]
  - Vision blurred [Unknown]
  - Spinal disorder [Unknown]
  - Sensory loss [Unknown]
  - Joint stiffness [Unknown]
  - Lordosis [Unknown]
  - Bone disorder [Unknown]
  - Oral pain [Unknown]
  - Haemorrhage [Unknown]
  - Swelling face [Unknown]
  - Abscess [Unknown]
  - Gastrooesophageal reflux disease [Unknown]
  - Peroneal nerve palsy [Unknown]
  - Bronchitis [Unknown]
  - Urinary incontinence [Unknown]
  - Asthma [Unknown]
  - Weight decreased [Unknown]
  - Staphylococcal infection [Unknown]
  - Chest pain [Unknown]
  - Onychomycosis [Unknown]
  - Muscle atrophy [Unknown]
  - Osteolysis [Unknown]
  - Fall [Unknown]
  - Exostosis [Unknown]
  - Dental caries [Unknown]
  - Fatigue [Unknown]
  - Limb injury [Unknown]
  - Vitamin D deficiency [Unknown]
  - Gait disturbance [Unknown]
  - Neuropathy peripheral [Recovering/Resolving]
  - Obesity [Unknown]
  - Vitreous detachment [Unknown]
  - Mucosal inflammation [Unknown]
  - Infection [Unknown]
  - Hypophagia [Unknown]
  - Tooth fracture [Unknown]
  - Jaw disorder [Unknown]
  - Anaemia [Unknown]
  - Spinal fracture [Unknown]
  - Joint effusion [Unknown]
  - Enthesopathy [Unknown]
  - Diplopia [Unknown]
  - Pulmonary mass [Unknown]
  - Sciatica [Unknown]
  - Diarrhoea [Unknown]
  - Gastrointestinal disorder [Unknown]
  - Arthropathy [Unknown]
  - Osteoradionecrosis [Unknown]
  - Polyneuropathy [Unknown]
  - Limb discomfort [Unknown]
  - Secretion discharge [Unknown]
  - Skin ulcer [Unknown]
  - Rotator cuff syndrome [Unknown]
  - Osteoarthritis [Unknown]
  - Myalgia [Unknown]
  - Nasal congestion [Unknown]
  - Hypokalaemia [Unknown]
  - Osteonecrosis of jaw [Unknown]
  - Periodontitis [Unknown]
  - Pain in extremity [Unknown]
  - Compression fracture [Unknown]
  - Decreased appetite [Unknown]
  - Postmenopausal haemorrhage [Unknown]
  - Muscular weakness [Unknown]
  - Dyspnoea exertional [Recovered/Resolved]
  - Candida infection [Unknown]
  - Umbilical hernia [Unknown]
  - Radicular pain [Unknown]
  - Oedema peripheral [Unknown]
  - Neuralgia [Unknown]
  - Cystitis [Unknown]
  - Delirium [Unknown]
  - Amnesia [Unknown]
  - Renal failure acute [Unknown]
  - Adrenal neoplasm [Unknown]
  - Pancytopenia [Unknown]
  - Pain [Unknown]
  - Deformity [Unknown]
  - Mass [Unknown]
  - Synovitis [Unknown]
  - Cholelithiasis [Unknown]
  - Tinea pedis [Unknown]
  - Kyphosis [Unknown]
  - Metastases to meninges [Unknown]
  - Dysuria [Recovering/Resolving]
  - Arthralgia [Recovering/Resolving]
  - Eating disorder [Unknown]
  - Hot flush [Unknown]
  - Rheumatoid arthritis [Unknown]
  - Musculoskeletal pain [Unknown]
  - Alopecia [Unknown]
  - Ear pain [Unknown]
  - Joint range of motion decreased [Unknown]
  - Spinal osteoarthritis [Unknown]
  - Sneezing [Unknown]
  - Cataract [Unknown]
  - Dry eye [Unknown]
  - Sepsis [Unknown]
  - Primary sequestrum [Unknown]
  - Lymph gland infection [Unknown]
  - Conjunctivitis [Unknown]
  - Urinary tract infection [Unknown]
  - Impaired healing [Recovered/Resolved]
  - Mental status changes [Unknown]
  - Radiculopathy [Unknown]
  - Nerve root compression [Unknown]
  - Hypoaesthesia [Unknown]
  - Hydromyelia [Unknown]
  - Metastases to nervous system [Unknown]
  - Balance disorder [Unknown]
  - Paraesthesia [Unknown]
  - Burning sensation [Not Recovered/Not Resolved]
  - Vomiting [Unknown]
  - Nerve injury [Unknown]
  - Heterophoria [Unknown]
  - Osteomyelitis [Unknown]
  - Ovarian mass [Unknown]
  - Cellulitis [Unknown]
  - Diabetic foot [Unknown]
  - Diverticulum intestinal [Unknown]
  - Spinal cord neoplasm [Unknown]
  - Osteopenia [Unknown]
  - Rhinitis allergic [Unknown]
  - Decubitus ulcer [Unknown]
  - Constipation [Unknown]
  - Ovarian neoplasm [Unknown]
  - Nausea [Unknown]
  - Retinal degeneration [Unknown]
  - Gingival disorder [Unknown]
  - Emotional distress [Unknown]
  - Colitis [Unknown]
  - Osteoporosis [Unknown]
  - Hypercholesterolaemia [Unknown]
  - Insomnia [Unknown]
  - Diabetes mellitus [Unknown]
  - Arrhythmia [Unknown]
  - Ataxia [Unknown]
  - Vertebral foraminal stenosis [Unknown]
  - Cervical radiculopathy [Unknown]
  - Intervertebral disc protrusion [Unknown]
  - Renal failure chronic [Unknown]
  - Renal cyst [Unknown]
  - Asthenia [Unknown]
  - Heart rate increased [Unknown]
  - Wheezing [Unknown]
  - Mononeuritis [Unknown]
  - Dehydration [Unknown]

NARRATIVE: CASE EVENT DATE: 20000210
